FAERS Safety Report 17148032 (Version 2)
Quarter: 2020Q1

REPORT INFORMATION
  Report Type: Spontaneous
  Country: US (occurrence: US)
  Receive Date: 20191212
  Receipt Date: 20200303
  Transmission Date: 20200409
  Serious: Yes (Other)
  Sender: FDA-Public Use
  Company Number: US-ELI_LILLY_AND_COMPANY-US201912005760

PATIENT
  Sex: Female
  Weight: 51 kg

DRUGS (4)
  1. ORENITRAM [Suspect]
     Active Substance: TREPROSTINIL
     Indication: PULMONARY ARTERIAL HYPERTENSION
     Dosage: 3 DOSAGE FORM, BID
     Route: 048
     Dates: start: 20171117
  2. ORENITRAM [Suspect]
     Active Substance: TREPROSTINIL
     Dosage: 6 MG, DAILY
     Route: 048
  3. ADCIRCA [Suspect]
     Active Substance: TADALAFIL
     Indication: PULMONARY ARTERIAL HYPERTENSION
     Dosage: UNK UNK, UNKNOWN
     Route: 065
  4. ORENITRAM [Suspect]
     Active Substance: TREPROSTINIL
     Dosage: 2 MG, TID
     Route: 048

REACTIONS (6)
  - Palpitations [Unknown]
  - Pulmonary arterial pressure increased [Unknown]
  - Feeling jittery [Unknown]
  - Therapeutic product effect decreased [Unknown]
  - Dyspnoea [Unknown]
  - Anxiety [Unknown]
